FAERS Safety Report 8402885-0 (Version None)
Quarter: 2012Q2

REPORT INFORMATION
  Report Type: 
  Country: None (occurrence: None)
  Receive Date: 20120601
  Receipt Date: 20120524
  Transmission Date: 20120825
  Serious: Yes (Death, Hospitalization)
  Sender: FDA-Public Use
  Company Number: US-GLAXOSMITHKLINE-A0898912A

PATIENT
  Age: 63 Year
  Sex: Female

DRUGS (1)
  1. AVANDIA [Suspect]
     Indication: TYPE 2 DIABETES MELLITUS
     Dosage: 8MG PER DAY
     Route: 048
     Dates: start: 20011018, end: 20011118

REACTIONS (5)
  - RESPIRATORY FAILURE [None]
  - DEATH [None]
  - ISCHAEMIC CARDIOMYOPATHY [None]
  - INJURY [None]
  - CARDIAC FAILURE CONGESTIVE [None]
